FAERS Safety Report 7531020-6 (Version None)
Quarter: 2011Q2

REPORT INFORMATION
  Report Type: 
  Country: None (occurrence: None)
  Receive Date: 20110608
  Receipt Date: 20110527
  Transmission Date: 20111010
  Serious: Yes (Other)
  Sender: FDA-Public Use
  Company Number: CA-JNJFOC-20110512406

PATIENT
  Sex: Female

DRUGS (1)
  1. STELARA [Suspect]
     Indication: PSORIASIS
     Dosage: FREQUENCY REPORTED AS 0, 4,16,28,Q12 WEEKS
     Route: 058
     Dates: start: 20100321

REACTIONS (1)
  - MASS [None]
